FAERS Safety Report 16879495 (Version 4)
Quarter: 2019Q4

REPORT INFORMATION
  Report Type: Spontaneous
  Country: ES (occurrence: ES)
  Receive Date: 20191003
  Receipt Date: 20191204
  Transmission Date: 20200122
  Serious: Yes (Life-Threatening, Hospitalization, Other)
  Sender: FDA-Public Use
  Company Number: PHHY2019ES227998

PATIENT
  Age: 46 Year
  Sex: Male

DRUGS (9)
  1. HYDROCHLOROTHIAZIDE. [Suspect]
     Active Substance: HYDROCHLOROTHIAZIDE
     Indication: HYPERTENSION
     Dosage: 25 MG, QD
     Route: 048
     Dates: start: 20180725, end: 20180814
  2. PARACETAMOL [Concomitant]
     Active Substance: ACETAMINOPHEN
     Indication: PAIN
     Dosage: 1 G, Q8H
     Route: 048
     Dates: start: 20180719, end: 20180831
  3. ENALAPRIL MALEATE. [Suspect]
     Active Substance: ENALAPRIL MALEATE
     Indication: HYPERTENSION
     Dosage: 40 MG, QD
     Route: 048
     Dates: start: 20180719, end: 20180814
  4. ACETYLSALICYLIC ACID [Suspect]
     Active Substance: ASPIRIN
     Indication: CARDIOVASCULAR EVENT PROPHYLAXIS
     Dosage: 100 MG, QD
     Route: 048
     Dates: start: 20180725, end: 20180814
  5. DOXAZOSIN [Suspect]
     Active Substance: DOXAZOSIN MESYLATE
     Indication: HYPERTENSION
     Dosage: 16 MG, QD
     Route: 048
     Dates: start: 20180719, end: 20180814
  6. AMLODIPINE [Suspect]
     Active Substance: AMLODIPINE BESYLATE
     Indication: HYPERTENSION
     Dosage: 10 MG, QD
     Route: 048
     Dates: start: 20180719, end: 20180814
  7. BEMIPARIN SODIUM [Concomitant]
     Active Substance: BEMIPARIN SODIUM
     Indication: PAIN
     Dosage: 3500 IU, QD
     Route: 058
     Dates: start: 20180719, end: 20180731
  8. HYDRALAZINE [Suspect]
     Active Substance: HYDRALAZINE HYDROCHLORIDE
     Indication: HYPERTENSION
     Dosage: 50 MG, Q8H
     Route: 048
     Dates: start: 20180719, end: 20180814
  9. AMOXICILLIN,CLAVULANIC ACID [Suspect]
     Active Substance: AMOXICILLIN\CLAVULANIC ACID
     Indication: INFECTION
     Dosage: 1 DF, Q8H
     Route: 048
     Dates: start: 20180719, end: 20180831

REACTIONS (1)
  - Toxic epidermal necrolysis [Recovered/Resolved]

NARRATIVE: CASE EVENT DATE: 20180814
